FAERS Safety Report 5647396-0 (Version None)
Quarter: 2008Q1

REPORT INFORMATION
  Report Type: 
  Country: None (occurrence: None)
  Receive Date: 20080228
  Receipt Date: 20080220
  Transmission Date: 20080703
  Serious: Yes (Disabling)
  Sender: FDA-Public Use
  Company Number: 2008-01464

PATIENT
  Age: 60 Year
  Sex: Male

DRUGS (2)
  1. HEPARIN SODIUM [Suspect]
     Indication: DEEP VEIN THROMBOSIS
     Dosage: INTRAVENOUS
     Route: 042
     Dates: start: 20070101, end: 20070101
  2. WARFARIN SODIUM [Suspect]
     Indication: DEEP VEIN THROMBOSIS
     Dosage: ORAL
     Route: 048
     Dates: start: 20070101, end: 20070101

REACTIONS (3)
  - DEEP VEIN THROMBOSIS [None]
  - IATROGENIC INJURY [None]
  - POST PROCEDURAL COMPLICATION [None]
